FAERS Safety Report 12627066 (Version 1)
Quarter: 2016Q3

REPORT INFORMATION
  Report Type: Report from Study
  Country: US (occurrence: US)
  Receive Date: 20160805
  Receipt Date: 20160805
  Transmission Date: 20161109
  Serious: Yes (Other)
  Sender: FDA-Public Use
  Company Number: US-ABBVIE-16K-163-1689635-00

PATIENT
  Age: 59 Year
  Sex: Female

DRUGS (14)
  1. FERROUS SULFATE. [Concomitant]
     Active Substance: FERROUS SULFATE
     Indication: IRON DEFICIENCY
  2. AREDSAN [Concomitant]
     Indication: MACULAR DEGENERATION
  3. VITAMIN D [Concomitant]
     Active Substance: CHOLECALCIFEROL
     Indication: VITAMIN D DEFICIENCY
  4. LEVOTHYROXINE. [Concomitant]
     Active Substance: LEVOTHYROXINE
     Indication: HYPOTHYROIDISM
  5. PHENYTOIN. [Concomitant]
     Active Substance: PHENYTOIN
     Indication: EPILEPSY
  6. VITAMIN B12 [Concomitant]
     Active Substance: CYANOCOBALAMIN
     Indication: VITAMIN SUPPLEMENTATION
  7. PANTOPRAZOLE [Concomitant]
     Active Substance: PANTOPRAZOLE SODIUM
     Indication: GASTROOESOPHAGEAL REFLUX DISEASE
  8. HUMIRA [Suspect]
     Active Substance: ADALIMUMAB
     Indication: PSORIASIS
     Route: 058
     Dates: start: 2010, end: 201607
  9. HUMIRA [Suspect]
     Active Substance: ADALIMUMAB
     Indication: PSORIATIC ARTHROPATHY
  10. CLOBETASOL [Concomitant]
     Active Substance: CLOBETASOL
     Indication: PSORIASIS
  11. PRIMIDONE. [Concomitant]
     Active Substance: PRIMIDONE
     Indication: EPILEPSY
  12. TRIAMCINOLONE [Concomitant]
     Active Substance: TRIAMCINOLONE
     Indication: PSORIASIS
  13. LIDEX [Concomitant]
     Active Substance: FLUOCINONIDE
     Indication: PSORIASIS
  14. LIPITOR [Concomitant]
     Active Substance: ATORVASTATIN CALCIUM
     Indication: BLOOD CHOLESTEROL INCREASED

REACTIONS (18)
  - Sinus disorder [Recovering/Resolving]
  - Chronic sinusitis [Recovering/Resolving]
  - Deafness [Recovering/Resolving]
  - Pneumonia [Recovered/Resolved]
  - Nasal pruritus [Recovering/Resolving]
  - Aortic aneurysm [Not Recovered/Not Resolved]
  - Contusion [Recovered/Resolved]
  - Back pain [Not Recovered/Not Resolved]
  - Nasal polyps [Recovered/Resolved]
  - Lymphadenopathy [Not Recovered/Not Resolved]
  - Nasal septum deviation [Recovered/Resolved]
  - Bronchitis [Recovered/Resolved]
  - Sinus polyp [Recovered/Resolved]
  - Cardiomegaly [Not Recovered/Not Resolved]
  - Diplopia [Recovered/Resolved]
  - Road traffic accident [Recovered/Resolved]
  - Intervertebral disc compression [Not Recovered/Not Resolved]
  - Upper-airway cough syndrome [Recovering/Resolving]

NARRATIVE: CASE EVENT DATE: 2014
